FAERS Safety Report 7960225-5 (Version None)
Quarter: 2011Q4

REPORT INFORMATION
  Report Type: 
  Country: None (occurrence: None)
  Receive Date: 20111206
  Receipt Date: 20111125
  Transmission Date: 20120403
  Serious: Yes (Hospitalization)
  Sender: FDA-Public Use
  Company Number: JP-SANOFI-AVENTIS-2011SA064516

PATIENT
  Age: 52 Year
  Sex: Male
  Weight: 69.4 kg

DRUGS (11)
  1. SPIRONOLACTONE [Concomitant]
     Dates: end: 20110121
  2. TIAPRIDE HYDROCHLORIDE [Concomitant]
     Dates: start: 20110120
  3. ROHYPNOL [Concomitant]
     Dates: start: 20110121, end: 20110202
  4. WARFARIN SODIUM [Concomitant]
     Dates: start: 20100512, end: 20100718
  5. YOKUKAN-SAN [Concomitant]
     Dates: start: 20110223
  6. DISOPYRAMIDE PHOSPHATE [Concomitant]
     Dates: start: 20100512, end: 20100718
  7. LEVOTOMIN [Concomitant]
     Dates: start: 20110121
  8. LASIX [Concomitant]
  9. ZOLPIDEM [Suspect]
     Indication: INSOMNIA
     Route: 048
     Dates: start: 20100617
  10. LANSOPRAZOLE [Concomitant]
     Dates: end: 20100630
  11. RISPERDAL [Concomitant]
     Route: 048
     Dates: start: 20100428, end: 20110304

REACTIONS (1)
  - DELIRIUM [None]
